FAERS Safety Report 6003147-1 (Version None)
Quarter: 2008Q4

REPORT INFORMATION
  Report Type: 
  Country: None (occurrence: None)
  Receive Date: 20081216
  Receipt Date: 20081209
  Transmission Date: 20090506
  Serious: Yes (Hospitalization)
  Sender: FDA-Public Use
  Company Number: FR-JNJFOC-20081202390

PATIENT
  Age: 84 Year
  Sex: Male

DRUGS (3)
  1. TAVANIC [Suspect]
     Indication: INFECTION
     Route: 048
  2. ROCEPHIN [Suspect]
     Indication: INFECTION
     Route: 042
  3. CORTANCYL [Concomitant]
     Indication: RHEUMATOID ARTHRITIS
     Route: 048

REACTIONS (5)
  - DERMATITIS EXFOLIATIVE [None]
  - EOSINOPHILIA [None]
  - HYPERSENSITIVITY [None]
  - PRURITUS [None]
  - TOXIC SKIN ERUPTION [None]
